FAERS Safety Report 7790883-X (Version None)
Quarter: 2011Q3

REPORT INFORMATION
  Report Type: 
  Country: None (occurrence: None)
  Receive Date: 20110930
  Receipt Date: 20110926
  Transmission Date: 20111222
  Serious: Yes (Death, Other)
  Sender: FDA-Public Use
  Company Number: FR-ASTRAZENECA-2011SE57874

PATIENT
  Age: 79 Year
  Sex: Female

DRUGS (10)
  1. COLCHICINE [Interacting]
     Indication: GOUT
     Route: 048
     Dates: start: 20110712, end: 20110908
  2. CARTREX [Concomitant]
  3. INDAPAMIDE [Concomitant]
  4. EZETIMIBE [Concomitant]
  5. ATENOLOL G GAM [Concomitant]
  6. ACETAMINOPHEN [Concomitant]
     Route: 048
  7. CLARITHROMYCIN [Interacting]
     Indication: BRONCHITIS
     Route: 048
     Dates: start: 20110829, end: 20110906
  8. PREDNISOLONE [Concomitant]
     Route: 048
     Dates: start: 20110829, end: 20110901
  9. CRESTOR [Suspect]
     Indication: DYSLIPIDAEMIA
     Route: 048
     Dates: start: 20110712
  10. TRAMADOL HCL [Concomitant]
     Dates: start: 20110829

REACTIONS (9)
  - SEPTIC SHOCK [None]
  - BRONCHITIS [None]
  - HYPOVENTILATION [None]
  - RENAL FAILURE [None]
  - BONE MARROW FAILURE [None]
  - RIB FRACTURE [None]
  - BLOOD POTASSIUM DECREASED [None]
  - DRUG INTERACTION [None]
  - FALL [None]
